FAERS Safety Report 8137887-5 (Version None)
Quarter: 2012Q1

REPORT INFORMATION
  Report Type: 
  Country: None (occurrence: None)
  Receive Date: 20120215
  Receipt Date: 20120207
  Transmission Date: 20120608
  Serious: Yes (Hospitalization)
  Sender: FDA-Public Use
  Company Number: US-BAYER-2011-058361

PATIENT
  Age: 26 Year
  Sex: Female
  Weight: 68.027 kg

DRUGS (17)
  1. ELETRIPTAN HYDROBROMIDE [Concomitant]
     Indication: MIGRAINE
     Dosage: UNK UNK, PRN
     Route: 048
     Dates: start: 20080101, end: 20100101
  2. ACETAMINOPHEN [Concomitant]
     Indication: HEADACHE
     Dosage: UNK UNK, PRN
     Route: 048
     Dates: start: 20080101
  3. YAZ [Suspect]
     Dosage: UNK
     Dates: start: 20090604, end: 20090627
  4. PHENERGAN [Concomitant]
     Indication: HYPERSENSITIVITY
     Dosage: UNK UNK, PRN
     Route: 048
     Dates: start: 20080101
  5. VALTREX [Concomitant]
     Dosage: UNK
     Route: 048
     Dates: start: 20090629
  6. REGLAN [Concomitant]
     Dosage: 10 MG, UNK
     Route: 042
     Dates: start: 20090629
  7. SODIUM CHLORIDE [Concomitant]
     Dosage: 1 L, UNK
     Route: 042
     Dates: start: 20090629
  8. TOPAMAX [Concomitant]
     Indication: MIGRAINE
  9. ZOFRAN [Concomitant]
     Indication: NAUSEA
     Dosage: 4 MG, UNK
     Route: 042
     Dates: start: 20080101
  10. ZOFRAN [Concomitant]
     Indication: VOMITING
  11. XANAX [Concomitant]
     Dosage: UNK
     Route: 048
     Dates: start: 20090629
  12. TOPAMAX [Concomitant]
     Indication: CONVULSION
     Dosage: 100 MG, QD
     Route: 048
     Dates: start: 20040101, end: 20100101
  13. PERCOCET [Concomitant]
     Indication: PAIN
     Dosage: UNK
     Route: 048
     Dates: start: 20050101, end: 20100101
  14. MAXALT [Concomitant]
     Indication: HEADACHE
     Dosage: UNK
     Route: 048
     Dates: start: 20080101
  15. MORPHINE [Concomitant]
     Dosage: 5 MG, UNK
     Route: 042
     Dates: start: 20090629
  16. MAGNESIUM [MAGNESIUM] [Concomitant]
     Dosage: UNK
     Dates: start: 20090704
  17. ELAVIL [Concomitant]
     Dosage: UNK
     Dates: start: 20090704

REACTIONS (7)
  - ANHEDONIA [None]
  - INJURY [None]
  - PAIN [None]
  - SUPERIOR SAGITTAL SINUS THROMBOSIS [None]
  - MIGRAINE [None]
  - MENTAL DISORDER [None]
  - ANXIETY [None]
